FAERS Safety Report 4836307-3 (Version None)
Quarter: 2005Q4

REPORT INFORMATION
  Report Type: 
  Country: None (occurrence: None)
  Receive Date: 20051118
  Receipt Date: 20051101
  Transmission Date: 20060501
  Serious: Yes (Other)
  Sender: FDA-Public Use
  Company Number: CAR_0035_2005

PATIENT
  Age: 32 Year
  Sex: Female

DRUGS (6)
  1. ACYCLOVIR [Suspect]
     Indication: VARICELLA
     Dosage: 800  MG TID PO
     Route: 048
     Dates: start: 20050727, end: 20050727
  2. ACYCLOVIR [Suspect]
     Indication: VARICELLA
     Dosage: 800 MG BID PO
     Route: 048
     Dates: start: 20050728, end: 20050728
  3. ACYCLOVIR [Suspect]
     Indication: VARICELLA
     Dosage: 800 MG TID PO
     Route: 048
  4. ACYCLOVIR [Suspect]
     Indication: VARICELLA
     Dosage: 800 MG BID PO
     Route: 048
  5. PRENATAL VITAMINS [Concomitant]
  6. PROMETRIUM [Concomitant]

REACTIONS (5)
  - ABORTION SPONTANEOUS [None]
  - DRUG EXPOSURE DURING PREGNANCY [None]
  - EMOTIONAL DISTRESS [None]
  - METRORRHAGIA [None]
  - VAGINAL HAEMORRHAGE [None]
